FAERS Safety Report 12667393 (Version 4)
Quarter: 2016Q3

REPORT INFORMATION
  Report Type: Spontaneous
  Country: US (occurrence: US)
  Receive Date: 20160819
  Receipt Date: 20160928
  Transmission Date: 20161109
  Serious: No
  Sender: FDA-Public Use
  Company Number: US-PFIZER INC-2016387150

PATIENT
  Age: 81 Year
  Sex: Female
  Weight: 65.77 kg

DRUGS (6)
  1. KETOROLAC TROMETHAMINE. [Suspect]
     Active Substance: KETOROLAC TROMETHAMINE
     Indication: CATARACT
     Dosage: UNK
     Dates: start: 20160712, end: 20160811
  2. COMBIGAN [Suspect]
     Active Substance: BRIMONIDINE TARTRATE\TIMOLOL MALEATE
     Indication: CATARACT
     Dosage: 1 GTT, 2X/DAY(BEFORE OPERATION)
     Route: 047
     Dates: start: 20160712, end: 20160811
  3. CIPROFLOXACIN. [Concomitant]
     Active Substance: CIPROFLOXACIN
     Indication: CATARACT
     Dosage: 1 GTT, 4X/DAY
     Route: 047
     Dates: end: 20160811
  4. ILEVRO [Concomitant]
     Active Substance: NEPAFENAC
     Indication: CATARACT OPERATION
     Dosage: UNK UNK, 1X/DAY
     Route: 047
     Dates: start: 20160612, end: 20160811
  5. KETOROLAC TROMETHAMINE. [Suspect]
     Active Substance: KETOROLAC TROMETHAMINE
     Indication: SURGERY
     Dosage: 2 GTT, 4X/DAY
     Route: 047
     Dates: start: 20160708, end: 20160803
  6. PREDNISOLONE. [Concomitant]
     Active Substance: PREDNISOLONE
     Indication: CATARACT
     Dosage: 1 GTT, 4X/DAY
     Route: 047
     Dates: end: 20160811

REACTIONS (4)
  - Pruritus [Recovered/Resolved]
  - Arthralgia [Recovered/Resolved]
  - Chest discomfort [Recovered/Resolved]
  - Drug ineffective for unapproved indication [Unknown]

NARRATIVE: CASE EVENT DATE: 20160803
